FAERS Safety Report 17825456 (Version 6)
Quarter: 2020Q3

REPORT INFORMATION
  Report Type: Spontaneous
  Country: US (occurrence: US)
  Receive Date: 20200526
  Receipt Date: 20200820
  Transmission Date: 20201102
  Serious: Yes (Hospitalization, Congenital Anomaly)
  Sender: FDA-Public Use
  Company Number: US-ACTELION-A-US2020-202181

PATIENT
  Age: 7 Month
  Sex: Male
  Weight: 8.4 kg

DRUGS (27)
  1. TRACLEER [Suspect]
     Active Substance: BOSENTAN
     Dosage: 2 MG/KG
     Route: 048
  2. BACITRACIN. [Concomitant]
     Active Substance: BACITRACIN
     Dosage: 15 G, BID
     Route: 061
     Dates: start: 20200602, end: 20200605
  3. FLUTICASONE. [Concomitant]
     Active Substance: FLUTICASONE
     Dosage: 1 PUFF, BID
     Route: 055
  4. IBUPROFEN. [Concomitant]
     Active Substance: IBUPROFEN
     Indication: PAIN
  5. FLOVENT HFA [Concomitant]
     Active Substance: FLUTICASONE PROPIONATE
  6. SYNAGIS [Concomitant]
     Active Substance: PALIVIZUMAB
     Dosage: 100 UNK
     Route: 030
  7. REVATIO [Concomitant]
     Active Substance: SILDENAFIL CITRATE
     Dosage: 0.8 ML, TID
  8. FENTANYL. [Concomitant]
     Active Substance: FENTANYL
     Dosage: 5 MCG QD
     Route: 042
     Dates: start: 20200602
  9. POLY VI SOL [VITAMINS NOS] [Concomitant]
     Dosage: UNK, QD
     Route: 048
  10. ONDANSETRON [Concomitant]
     Active Substance: ONDANSETRON
     Indication: VOMITING
  11. PREDNISOLONE. [Concomitant]
     Active Substance: PREDNISOLONE
     Dosage: 2.5 ML
  12. TRACLEER [Suspect]
     Active Substance: BOSENTAN
     Indication: PULMONARY HYPERTENSION
     Dosage: 16 MG, BID
     Route: 048
     Dates: start: 20200107
  13. CEFAZOLIN [Concomitant]
     Active Substance: CEFAZOLIN
     Dosage: 270MG IVPB Q8H
     Route: 042
     Dates: start: 20200602, end: 20200605
  14. ONDANSETRON [Concomitant]
     Active Substance: ONDANSETRON
     Indication: NAUSEA
     Dosage: 4 MG
     Route: 048
  15. SILDENAFIL. [Concomitant]
     Active Substance: SILDENAFIL
     Indication: PULMONARY HYPERTENSION
     Dosage: 7.5MG Q6H
     Dates: start: 20200602
  16. METRONIDAZOLE. [Concomitant]
     Active Substance: METRONIDAZOLE
     Dosage: 80MG IVPB Q8H
     Route: 042
     Dates: start: 20200602, end: 20200604
  17. CHILDRENS TYLENOL [Concomitant]
     Active Substance: ACETAMINOPHEN
     Indication: DISCOMFORT
  18. ALBUTEROL SULFATE. [Concomitant]
     Active Substance: ALBUTEROL SULFATE
     Indication: DYSPNOEA
  19. CLINDAMYCIN. [Concomitant]
     Active Substance: CLINDAMYCIN
     Dosage: 5 ML, TID
     Route: 048
  20. TRIAMCINOLONE ACETONIDE. [Concomitant]
     Active Substance: TRIAMCINOLONE ACETONIDE
     Dosage: 0.1 %
  21. CHILDRENS TYLENOL [Concomitant]
     Active Substance: ACETAMINOPHEN
     Indication: PYREXIA
     Dosage: 3.3 ML
  22. CETIRIZINE [Concomitant]
     Active Substance: CETIRIZINE HYDROCHLORIDE
     Dosage: 2.5 ML, QD
  23. PULMICORT TURBUHALER [Concomitant]
     Active Substance: BUDESONIDE
     Indication: CHRONIC RESPIRATORY DISEASE
     Dosage: 0.25 MG, BID
  24. SILDENAFIL. [Concomitant]
     Active Substance: SILDENAFIL
     Dosage: 1 MG/KG, Q6HRS
  25. KETOROLAC [Concomitant]
     Active Substance: KETOROLAC TROMETHAMINE
     Dosage: 4 MG, Q6HRS
     Route: 042
     Dates: start: 20200602, end: 20200605
  26. ALBUTEROL SULFATE. [Concomitant]
     Active Substance: ALBUTEROL SULFATE
     Indication: WHEEZING
     Dosage: 0.5 %, Q4HRS
     Route: 055
  27. FAMOTIDINE. [Concomitant]
     Active Substance: FAMOTIDINE
     Dosage: 0.5 ML

REACTIONS (20)
  - Product administration error [Unknown]
  - Hypoacusis [Unknown]
  - Eye swelling [Not Recovered/Not Resolved]
  - White blood cell count decreased [Unknown]
  - Leukopenia [Unknown]
  - Lung opacity [Unknown]
  - Illness [Recovered/Resolved]
  - Product dose omission issue [Unknown]
  - Dyspnoea [Unknown]
  - Cough [Recovered/Resolved]
  - Nasal congestion [Recovered/Resolved]
  - Feeling abnormal [Unknown]
  - Pulmonary arterial pressure increased [Unknown]
  - Rash [Recovered/Resolved]
  - Eczema [Recovered/Resolved]
  - Colostomy [Recovered/Resolved]
  - Anoplasty [Recovered/Resolved]
  - Dermatitis [Recovered/Resolved]
  - Procedural pain [Recovered/Resolved]
  - Hair growth abnormal [Unknown]

NARRATIVE: CASE EVENT DATE: 20200114
